FAERS Safety Report 6220944-8 (Version None)
Quarter: 2009Q2

REPORT INFORMATION
  Report Type: 
  Country: None (occurrence: None)
  Receive Date: 20090610
  Receipt Date: 20090602
  Transmission Date: 20091009
  Serious: Yes (Death, Hospitalization, Other)
  Sender: FDA-Public Use
  Company Number: AU-ELI_LILLY_AND_COMPANY-AU200903005762

PATIENT
  Sex: Female

DRUGS (4)
  1. GEMZAR [Suspect]
     Indication: BILE DUCT CANCER
     Dosage: 1800 MG, UNKNOWN
     Route: 065
     Dates: start: 20081204, end: 20090319
  2. DIAMICRON [Concomitant]
     Indication: TYPE 2 DIABETES MELLITUS
     Dosage: 30 MG, UNKNOWN
     Route: 065
  3. METFORMIN [Concomitant]
     Indication: TYPE 2 DIABETES MELLITUS
     Dosage: 500 MG, 3/D
  4. MAXOLON [Concomitant]
     Indication: NAUSEA
     Dosage: 10 MG, 3/D

REACTIONS (9)
  - CARDIO-RESPIRATORY ARREST [None]
  - DERMATITIS EXFOLIATIVE [None]
  - FACE OEDEMA [None]
  - HAEMOGLOBIN DECREASED [None]
  - NEUTROPENIA [None]
  - PLATELET COUNT DECREASED [None]
  - RECTAL HAEMORRHAGE [None]
  - STOMATITIS [None]
  - VAGINAL HAEMORRHAGE [None]
